FAERS Safety Report 5514604-6 (Version None)
Quarter: 2007Q4

REPORT INFORMATION
  Report Type: 
  Country: None (occurrence: None)
  Receive Date: 20071113
  Receipt Date: 20071031
  Transmission Date: 20080405
  Serious: Yes (Other)
  Sender: FDA-Public Use
  Company Number: US-ELI_LILLY_AND_COMPANY-US200710007639

PATIENT
  Age: 64 Year
  Sex: Male

DRUGS (1)
  1. CIALIS [Suspect]
     Dosage: 20 MG, UNK
     Route: 048
     Dates: start: 20050101

REACTIONS (6)
  - NASAL CONGESTION [None]
  - OPTIC ISCHAEMIC NEUROPATHY [None]
  - OPTIC NERVE CUP/DISC RATIO DECREASED [None]
  - OPTIC NERVE SHEATH HAEMORRHAGE [None]
  - PAPILLOEDEMA [None]
  - VISUAL FIELD DEFECT [None]
